FAERS Safety Report 9603063 (Version 1)
Quarter: 2013Q4

REPORT INFORMATION
  Report Type: Spontaneous
  Country: US (occurrence: US)
  Receive Date: 20131007
  Receipt Date: 20131007
  Transmission Date: 20140711
  Serious: No
  Sender: FDA-Public Use
  Company Number: US-BAYER-2013-120393

PATIENT
  Age: 19 Year
  Sex: Male

DRUGS (1)
  1. ULTRAVIST [Suspect]
     Indication: PERITONSILLAR ABSCESS
     Dosage: 100 ML, ONCE
     Route: 042
     Dates: start: 20131003, end: 20131003

REACTIONS (1)
  - Urticaria [Not Recovered/Not Resolved]
